FAERS Safety Report 17172155 (Version 1)
Quarter: 2019Q4

REPORT INFORMATION
  Report Type: Spontaneous
  Country: DE (occurrence: DE)
  Receive Date: 20191219
  Receipt Date: 20191219
  Transmission Date: 20200122
  Serious: Yes (Hospitalization, Other)
  Sender: FDA-Public Use
  Company Number: NVSC2019DE071551

PATIENT

DRUGS (3)
  1. ACICLOVIR [Suspect]
     Active Substance: ACYCLOVIR
     Indication: PRODUCT USED FOR UNKNOWN INDICATION
     Dosage: UNK
     Route: 042
  2. CERVARIX [Suspect]
     Active Substance: HUMAN PAPILLOMAVIRUS TYPE 16 L1 CAPSID PROTEIN RESIDUES 2-471 ANTIGEN\HUMAN PAPILLOMAVIRUS TYPE 18 L1 CAPSID PROTEIN RESIDUES 2-472 ANTIGEN
     Indication: PROPHYLAXIS
     Dosage: UNK
     Route: 065
     Dates: start: 20190627, end: 20190627
  3. METAMIZOLE [Suspect]
     Active Substance: METAMIZOLE
     Indication: PRODUCT USED FOR UNKNOWN INDICATION
     Dosage: UNK
     Route: 065

REACTIONS (20)
  - Glomerular filtration rate decreased [Unknown]
  - Neck pain [Recovering/Resolving]
  - General physical health deterioration [Recovering/Resolving]
  - Renal pain [Unknown]
  - Back pain [Unknown]
  - Proteinuria [Unknown]
  - Asthenia [Unknown]
  - Meningitis herpes [Recovered/Resolved]
  - Leukocyturia [Unknown]
  - Meningism [Unknown]
  - Pleocytosis [Unknown]
  - Pyrexia [Recovered/Resolved]
  - Tympanic membrane hyperaemia [Unknown]
  - Vomiting [Unknown]
  - Pallor [Unknown]
  - Ketonuria [Unknown]
  - Rash [Unknown]
  - Headache [Recovering/Resolving]
  - Nausea [Unknown]
  - Blood creatinine decreased [Unknown]

NARRATIVE: CASE EVENT DATE: 20190628
